FAERS Safety Report 7804710-5 (Version None)
Quarter: 2011Q4

REPORT INFORMATION
  Report Type: 
  Country: None (occurrence: None)
  Receive Date: 20111010
  Receipt Date: 20110929
  Transmission Date: 20120403
  Serious: Yes (Life-Threatening, Hospitalization)
  Sender: FDA-Public Use
  Company Number: SE-JNJFOC-20110904290

PATIENT
  Age: 69 Year
  Sex: Male

DRUGS (4)
  1. REMICADE [Suspect]
     Indication: RHEUMATOID ARTHRITIS
     Route: 042
     Dates: start: 20110610, end: 20110727
  2. COX-1 ANTAGONIST [Concomitant]
     Route: 065
     Dates: start: 20090128
  3. ARAVA [Concomitant]
     Route: 065
     Dates: start: 20090914
  4. PREDNISOLONE [Concomitant]
     Route: 065
     Dates: start: 20090128

REACTIONS (4)
  - INFUSION RELATED REACTION [None]
  - COLD SWEAT [None]
  - HYPOTENSION [None]
  - URINARY INCONTINENCE [None]
